FAERS Safety Report 5252555-5 (Version None)
Quarter: 2007Q1

REPORT INFORMATION
  Report Type: 
  Country: None (occurrence: None)
  Receive Date: 20070301
  Receipt Date: 20070222
  Transmission Date: 20070707
  Serious: Yes (Hospitalization)
  Sender: FDA-Public Use
  Company Number: US-JNJFOC-20070205359

PATIENT
  Sex: Male

DRUGS (19)
  1. INFLIXIMAB [Suspect]
     Indication: RHEUMATOID ARTHRITIS
     Route: 042
  2. SINGULAIR [Concomitant]
  3. ASTELIN [Concomitant]
  4. FLONASE [Concomitant]
  5. CYMBALTA [Concomitant]
  6. ISOSORBIDE [Concomitant]
  7. LUNESTA [Concomitant]
  8. TRAZODONE HCL [Concomitant]
  9. TOPAMAX [Concomitant]
  10. ASPIRIN [Concomitant]
  11. METHADONE HCL [Concomitant]
  12. DEPAKOTE [Concomitant]
  13. ZELNORM [Concomitant]
  14. NEXIUM [Concomitant]
  15. DICYCLOMINE [Concomitant]
  16. SOMA [Concomitant]
  17. DIOVAN [Concomitant]
  18. PRAVACHOL [Concomitant]
  19. LYRICA [Concomitant]

REACTIONS (2)
  - ASTHMA [None]
  - ESSENTIAL HYPERTENSION [None]
